FAERS Safety Report 10698153 (Version 1)
Quarter: 2015Q1

REPORT INFORMATION
  Report Type: Spontaneous
  Country: US (occurrence: US)
  Receive Date: 20150108
  Receipt Date: 20150108
  Transmission Date: 20150721
  Serious: No
  Sender: FDA-Public Use
  Company Number: US-ELI_LILLY_AND_COMPANY-US201412007280

PATIENT
  Sex: Male

DRUGS (3)
  1. FORTEO [Suspect]
     Active Substance: TERIPARATIDE
     Indication: OSTEOPOROSIS
     Dosage: UNK UNK, QD
     Route: 065
     Dates: start: 201309, end: 201409
  2. FORTEO [Suspect]
     Active Substance: TERIPARATIDE
     Dosage: UNK UNK, QD
     Route: 065
     Dates: start: 20141207, end: 20141213
  3. VITAMIN D [Concomitant]
     Active Substance: CHOLECALCIFEROL
     Indication: PRODUCT USED FOR UNKNOWN INDICATION
     Route: 065

REACTIONS (1)
  - Injection site erythema [Unknown]

NARRATIVE: CASE EVENT DATE: 201412
